FAERS Safety Report 9723246 (Version 2)
Quarter: 2013Q4

REPORT INFORMATION
  Report Type: Report from Study
  Country: US (occurrence: US)
  Receive Date: 20131202
  Receipt Date: 20131226
  Transmission Date: 20140711
  Serious: Yes (Death)
  Sender: FDA-Public Use
  Company Number: US-ACTELION-A-US2013-91814

PATIENT
  Age: 30 Year
  Sex: Male

DRUGS (2)
  1. TRACLEER [Suspect]
     Indication: PULMONARY ARTERIAL HYPERTENSION
     Dosage: UNK
     Route: 048
     Dates: end: 20131118
  2. REMODULIN [Concomitant]

REACTIONS (9)
  - Septic shock [Fatal]
  - Blood pressure decreased [Fatal]
  - Chills [Fatal]
  - Dyspnoea [Fatal]
  - Tachycardia [Fatal]
  - Nausea [Unknown]
  - Diarrhoea [Unknown]
  - Catheter placement [Unknown]
  - Confusional state [Fatal]
